FAERS Safety Report 22070325 (Version 1)
Quarter: 2023Q1

REPORT INFORMATION
  Report Type: Spontaneous
  Country: US (occurrence: None)
  Receive Date: 20230306
  Receipt Date: 20230306
  Transmission Date: 20230418
  Serious: No
  Sender: FDA-Public Use
  Company Number: None

PATIENT
  Sex: Female

DRUGS (2)
  1. DEVICE [Suspect]
     Active Substance: DEVICE
  2. TREPROSTINIL [Concomitant]
     Active Substance: TREPROSTINIL
     Dosage: OTHER FREQUENCY : CONTINUOUS;?
     Route: 042
     Dates: start: 202203

REACTIONS (3)
  - Device malfunction [None]
  - Headache [None]
  - Diarrhoea [None]
